FAERS Safety Report 6499132-6 (Version None)
Quarter: 2009Q4

REPORT INFORMATION
  Report Type: 
  Country: None (occurrence: None)
  Receive Date: 20091127
  Receipt Date: 20081210
  Transmission Date: 20100525
  Serious: Yes (Other)
  Sender: FDA-Public Use
  Company Number: WAES 0707USA01454

PATIENT
  Age: 77 Year
  Sex: Female
  Weight: 60.782 kg

DRUGS (4)
  1. FOSAMAX [Suspect]
     Indication: OSTEOPOROSIS
     Dosage: 10 MG, PO
     Route: 048
     Dates: start: 20000414, end: 20030312
  2. FOSAMAX [Suspect]
     Indication: OSTEOPOROSIS
     Dosage: 70 MG, WKY, PO
     Route: 048
     Dates: start: 20030425, end: 20060401
  3. CENTRUM [Concomitant]
  4. OS-CAL [Concomitant]

REACTIONS (13)
  - ANXIETY [None]
  - BALANCE DISORDER [None]
  - CHRONIC SINUSITIS [None]
  - DENTAL CARIES [None]
  - DEPRESSION [None]
  - DYSPHAGIA [None]
  - NASAL CYST [None]
  - NODAL OSTEOARTHRITIS [None]
  - OSTEOMA [None]
  - OSTEOMYELITIS [None]
  - OSTEONECROSIS [None]
  - PERIODONTITIS [None]
  - TOOTH ABSCESS [None]
